FAERS Safety Report 17548817 (Version 2)
Quarter: 2020Q1

REPORT INFORMATION
  Report Type: Report from Study
  Country: US (occurrence: US)
  Receive Date: 20200317
  Receipt Date: 20200318
  Transmission Date: 20200409
  Serious: Yes (Other)
  Sender: FDA-Public Use
  Company Number: US-ROCHE-2564204

PATIENT
  Age: 46 Year
  Sex: Female
  Weight: 99.88 kg

DRUGS (3)
  1. OCREVUS [Suspect]
     Active Substance: OCRELIZUMAB
     Indication: RELAPSING MULTIPLE SCLEROSIS
     Dosage: ONGOING:YES
     Route: 042
     Dates: start: 201611
  2. OCREVUS [Suspect]
     Active Substance: OCRELIZUMAB
     Route: 042
     Dates: start: 20181115
  3. BACTRIM [Concomitant]
     Active Substance: SULFAMETHOXAZOLE\TRIMETHOPRIM
     Indication: URINARY TRACT INFECTION
     Dosage: INTERMITTENT USE ;ONGOING: UNKNOWN
     Route: 048
     Dates: start: 201807

REACTIONS (15)
  - Blindness unilateral [Recovering/Resolving]
  - Fatigue [Not Recovered/Not Resolved]
  - Urinary tract infection [Not Recovered/Not Resolved]
  - Weight increased [Unknown]
  - Herpes zoster [Recovered/Resolved]
  - Eye pain [Not Recovered/Not Resolved]
  - Pain [Not Recovered/Not Resolved]
  - Ophthalmic herpes zoster [Recovered/Resolved]
  - Neuralgia [Not Recovered/Not Resolved]
  - Surgical failure [Not Recovered/Not Resolved]
  - Fall [Unknown]
  - Pelvic fracture [Not Recovered/Not Resolved]
  - Hepatic enzyme increased [Unknown]
  - Memory impairment [Not Recovered/Not Resolved]
  - Visual impairment [Unknown]

NARRATIVE: CASE EVENT DATE: 201807
